FAERS Safety Report 8669920 (Version 2)
Quarter: 2012Q4

REPORT INFORMATION
  Report Type: 
  Country: CO (occurrence: CO)
  Receive Date: 20120718
  Receipt Date: 20121024
  Transmission Date: 20130627
  Serious: Yes (Hospitalization)
  Sender: FDA-Public Use
  Company Number: CO-PFIZER INC-2012170889

PATIENT
  Sex: Male

DRUGS (1)
  1. SUTENT [Suspect]
     Indication: RENAL CANCER METASTATIC
     Dosage: 50 mg, 1x/day
     Route: 048
     Dates: start: 20120618, end: 20120706

REACTIONS (2)
  - Stevens-Johnson syndrome [Unknown]
  - Palmar-plantar erythrodysaesthesia syndrome [Unknown]
